FAERS Safety Report 7606685-0 (Version None)
Quarter: 2011Q3

REPORT INFORMATION
  Report Type: 
  Country: None (occurrence: None)
  Receive Date: 20110713
  Receipt Date: 20110708
  Transmission Date: 20111222
  Serious: Yes (Hospitalization)
  Sender: FDA-Public Use
  Company Number: FR-ROCHE-781440

PATIENT
  Sex: Female
  Weight: 60 kg

DRUGS (6)
  1. AZARGA [Concomitant]
     Indication: GLAUCOMA
     Dosage: ROUTE: OCULAR
     Route: 047
     Dates: start: 20090101
  2. TIMOPTOL [Concomitant]
     Indication: GLAUCOMA
     Dosage: ROUTE: OCULAR
     Route: 047
     Dates: start: 20090101
  3. SPIRONOLACTONE [Concomitant]
     Route: 048
  4. PEGINTERFERON ALFA-2A [Suspect]
     Route: 058
     Dates: start: 20110210, end: 20110317
  5. RIBAVIRIN [Suspect]
     Route: 048
     Dates: start: 20110210, end: 20110320
  6. EPOETIN BETA [Suspect]
     Dosage: DOSE: 30000 UI
     Route: 058
     Dates: start: 20110317, end: 20110317

REACTIONS (1)
  - EPILEPSY [None]
